FAERS Safety Report 9639964 (Version 1)
Quarter: 2013Q4

REPORT INFORMATION
  Report Type: Report from Study
  Country: JP (occurrence: JP)
  Receive Date: 20131023
  Receipt Date: 20131023
  Transmission Date: 20140711
  Serious: Yes (Hospitalization)
  Sender: FDA-Public Use
  Company Number: JP-PFIZER INC-2013296612

PATIENT
  Age: 37 Year
  Sex: Male
  Weight: 56 kg

DRUGS (7)
  1. XALKORI [Suspect]
     Indication: NON-SMALL CELL LUNG CANCER
     Dosage: 250 MG, 2X/DAY
     Route: 048
     Dates: start: 20120814, end: 20121006
  2. XALKORI [Suspect]
     Dosage: 250 MG, 2X/DAY
     Route: 048
     Dates: start: 20121007, end: 20121010
  3. HYPEN [Concomitant]
     Dosage: 200 MG, 2X/DAY
     Route: 048
  4. TAKEPRON OD [Concomitant]
     Dosage: 15 MG, 1X/DAY
     Route: 048
  5. OXYCONTIN [Concomitant]
     Dosage: 5 MG, 2X/DAY
     Route: 048
  6. ZOMETA [Concomitant]
     Dosage: 4 MG, MONTHLY ONCE EVERY 4 WEEKS
     Route: 041
  7. LUPRAC [Concomitant]
     Dosage: 8 MG, 1X/DAY
     Route: 048
     Dates: start: 20120829, end: 20121101

REACTIONS (3)
  - Pleural effusion [Not Recovered/Not Resolved]
  - Dyspnoea [Not Recovered/Not Resolved]
  - Hypoxia [Not Recovered/Not Resolved]
